FAERS Safety Report 10792185 (Version 1)
Quarter: 2015Q1

REPORT INFORMATION
  Report Type: Spontaneous
  Country: US (occurrence: US)
  Receive Date: 20150213
  Receipt Date: 20150213
  Transmission Date: 20150721
  Serious: No
  Sender: FDA-Public Use
  Company Number: US-GLAXOSMITHKLINE-A1063648A

PATIENT

DRUGS (1)
  1. ALLI [Suspect]
     Active Substance: ORLISTAT

REACTIONS (5)
  - Drug ineffective [Unknown]
  - Gastrointestinal disorder [Unknown]
  - Product quality issue [Unknown]
  - Drug administration error [Unknown]
  - Treatment noncompliance [Unknown]
